FAERS Safety Report 5240407-6 (Version None)
Quarter: 2007Q1

REPORT INFORMATION
  Report Type: 
  Country: None (occurrence: None)
  Receive Date: 20070219
  Receipt Date: 20070213
  Transmission Date: 20070707
  Serious: Yes (Death, Hospitalization)
  Sender: FDA-Public Use
  Company Number: PHBS2007CN02709

PATIENT
  Age: 82 Year
  Sex: Female

DRUGS (1)
  1. VOLTAREN [Suspect]
     Dosage: 75 MG, QD
     Route: 048
     Dates: start: 20070102, end: 20070105

REACTIONS (4)
  - ARTERIAL HAEMORRHAGE [None]
  - CHEST PAIN [None]
  - HAEMATOCHEZIA [None]
  - NAUSEA [None]
